FAERS Safety Report 5535784-2 (Version None)
Quarter: 2007Q4

REPORT INFORMATION
  Report Type: 
  Country: None (occurrence: None)
  Receive Date: 20071206
  Receipt Date: 20020329
  Transmission Date: 20080405
  Serious: Yes (Hospitalization)
  Sender: FDA-Public Use
  Company Number: NO-MERCK-0201NOR00006

PATIENT
  Age: 19 Year
  Sex: Female

DRUGS (6)
  1. SINGULAIR [Suspect]
     Indication: ASTHMA
     Route: 048
     Dates: start: 19990311, end: 19990514
  2. EBASTINE [Concomitant]
     Route: 065
  3. BUDESONIDE [Concomitant]
     Route: 065
     Dates: start: 19950101
  4. BUDESONIDE [Concomitant]
     Route: 065
     Dates: start: 19930101
  5. SALMETEROL XINAFOATE [Concomitant]
     Route: 065
  6. CITALOPRAM HYDROBROMIDE [Concomitant]
     Route: 065

REACTIONS (1)
  - ALLERGIC GRANULOMATOUS ANGIITIS [None]
